FAERS Safety Report 11168376 (Version 1)
Quarter: 2015Q2

REPORT INFORMATION
  Report Type: Spontaneous
  Country: US (occurrence: None)
  Receive Date: 20150604
  Receipt Date: 20150604
  Transmission Date: 20150821
  Serious: No
  Sender: FDA-Public Use
  Company Number: None

PATIENT
  Age: 61 Year
  Sex: Female

DRUGS (2)
  1. SOVALDI [Suspect]
     Active Substance: SOFOSBUVIR
     Indication: HEPATITIS C
     Route: 048
     Dates: start: 20150506
  2. RIBAVIRIN. [Suspect]
     Active Substance: RIBAVIRIN
     Dosage: QAM AND QPM
     Route: 048
     Dates: start: 20150506

REACTIONS (3)
  - Blood bilirubin increased [None]
  - Fatigue [None]
  - Asthma [None]

NARRATIVE: CASE EVENT DATE: 201505
